FAERS Safety Report 14776675 (Version 2)
Quarter: 2018Q2

REPORT INFORMATION
  Report Type: Spontaneous
  Country: FR (occurrence: FR)
  Receive Date: 20180419
  Receipt Date: 20180427
  Transmission Date: 20180711
  Serious: Yes (Other)
  Sender: FDA-Public Use
  Company Number: FR-MERCK KGAA-2045989

PATIENT
  Age: 62 Year
  Sex: Female

DRUGS (1)
  1. NOVOTHYROX [Suspect]
     Active Substance: LEVOTHYROXINE SODIUM
     Indication: PRODUCT USED FOR UNKNOWN INDICATION

REACTIONS (16)
  - Pain [None]
  - Asthenia [None]
  - Malaise [None]
  - Nervousness [None]
  - Alopecia [None]
  - Muscle spasms [None]
  - Feeling abnormal [None]
  - Blood thyroid stimulating hormone decreased [None]
  - Headache [None]
  - Blood bilirubin increased [None]
  - Tachycardia [None]
  - Anxiety [None]
  - Insomnia [Not Recovered/Not Resolved]
  - Weight decreased [None]
  - Sleep disorder [None]
  - Emotional distress [None]

NARRATIVE: CASE EVENT DATE: 20171013
